FAERS Safety Report 10188606 (Version 1)
Quarter: 2014Q2

REPORT INFORMATION
  Report Type: Spontaneous
  Country: US (occurrence: US)
  Receive Date: 20140522
  Receipt Date: 20140522
  Transmission Date: 20141212
  Serious: Yes (Hospitalization)
  Sender: FDA-Public Use
  Company Number: US-B.I. PHARMACEUTICALS,INC./RIDGEFIELD-2014-BI-22250BP

PATIENT
  Age: 67 Year
  Sex: Male
  Weight: 94 kg

DRUGS (8)
  1. SPIRIVA [Suspect]
     Indication: CHRONIC OBSTRUCTIVE PULMONARY DISEASE
     Dosage: 18 MCG
     Route: 048
     Dates: start: 20140517, end: 20140517
  2. SPIRIVA [Suspect]
     Dosage: 18 MCG
     Route: 055
     Dates: start: 2012
  3. METFORMIN [Concomitant]
     Indication: DIABETES MELLITUS
     Route: 048
  4. ATENOLOL [Concomitant]
     Indication: HYPERTENSION
     Route: 048
  5. GABAPENTIN [Concomitant]
     Indication: NEUROPATHY PERIPHERAL
     Dosage: 1200 MG
     Route: 048
  6. OXYCODONE [Concomitant]
     Indication: ARTHRALGIA
     Dosage: 20 MG
     Route: 048
  7. TAMSULOSIN [Concomitant]
     Indication: DYSURIA
     Dosage: 0.4 MG
     Route: 050
  8. SIMVASTATIN [Concomitant]
     Indication: BLOOD CHOLESTEROL INCREASED
     Route: 048

REACTIONS (4)
  - Osteoarthritis [Recovered/Resolved]
  - Peripheral swelling [Recovered/Resolved]
  - Abnormal loss of weight [Not Recovered/Not Resolved]
  - Incorrect route of drug administration [Recovered/Resolved]
